FAERS Safety Report 15882380 (Version 1)
Quarter: 2019Q1

REPORT INFORMATION
  Report Type: Spontaneous
  Country: IN (occurrence: IN)
  Receive Date: 20190129
  Receipt Date: 20190129
  Transmission Date: 20190417
  Serious: Yes (Other)
  Sender: FDA-Public Use
  Company Number: IN-ROCHE-2253560

PATIENT

DRUGS (1)
  1. IKGDAR (RITUXIMAB) [Suspect]
     Active Substance: RITUXIMAB
     Indication: PRODUCT USED FOR UNKNOWN INDICATION
     Route: 065

REACTIONS (4)
  - Dysphonia [Unknown]
  - Infusion related reaction [None]
  - Tachycardia [Unknown]
  - Oropharyngeal pain [Unknown]
